FAERS Safety Report 9964572 (Version 1)
Quarter: 2014Q1

REPORT INFORMATION
  Report Type: Spontaneous
  Country: US (occurrence: US)
  Receive Date: 20140305
  Receipt Date: 20140305
  Transmission Date: 20141002
  Serious: No
  Sender: FDA-Public Use
  Company Number: US-AMGEN-USASP2013086614

PATIENT
  Age: 55 Year
  Sex: Female

DRUGS (1)
  1. ENBREL [Suspect]
     Indication: GUTTATE PSORIASIS
     Dosage: 50 MG/ML, UNK
     Route: 065
     Dates: start: 20131024

REACTIONS (2)
  - Headache [Unknown]
  - Nasal congestion [Unknown]
